FAERS Safety Report 4319800-1 (Version None)
Quarter: 2004Q1

REPORT INFORMATION
  Report Type: 
  Country: None (occurrence: None)
  Receive Date: 20040315
  Receipt Date: 20040311
  Transmission Date: 20041129
  Serious: Yes (Other)
  Sender: FDA-Public Use
  Company Number: 04-00122

PATIENT
  Sex: Female

DRUGS (1)
  1. PROPYLTHIOURACIL [Suspect]
     Dosage: 1200MG

REACTIONS (8)
  - CENTRAL NERVOUS SYSTEM STIMULATION [None]
  - DERMATITIS [None]
  - HEADACHE [None]
  - NAUSEA [None]
  - OVERDOSE [None]
  - PYREXIA [None]
  - SPEECH DISORDER [None]
  - THYROTOXIC CRISIS [None]
